FAERS Safety Report 22217617 (Version 1)
Quarter: 2023Q2

REPORT INFORMATION
  Report Type: Spontaneous
  Country: CA (occurrence: None)
  Receive Date: 20230417
  Receipt Date: 20230417
  Transmission Date: 20230721
  Serious: Yes (Hospitalization)
  Sender: FDA-Public Use
  Company Number: CA-ROCHE-3329836

PATIENT
  Age: 59 Year
  Sex: Female

DRUGS (1)
  1. ACTEMRA [Suspect]
     Active Substance: TOCILIZUMAB
     Indication: COVID-19
     Dosage: 4 SINGLE USE VIALS. PRESERVATIVE FREE
     Route: 042

REACTIONS (3)
  - Staphylococcal infection [Unknown]
  - Staphylococcus test positive [Unknown]
  - Streptococcal bacteraemia [Unknown]
